FAERS Safety Report 8232238-X (Version None)
Quarter: 2012Q1

REPORT INFORMATION
  Report Type: 
  Country: None (occurrence: None)
  Receive Date: 20120323
  Receipt Date: 20120313
  Transmission Date: 20120608
  Serious: Yes (Other)
  Sender: FDA-Public Use
  Company Number: US-SANOFI-AVENTIS-2012SA019288

PATIENT
  Age: 46 Year
  Sex: Female
  Weight: 71.6 kg

DRUGS (15)
  1. SIMVASTATIN [Concomitant]
     Dosage: START DATE:SINCE 10 YEARS
  2. CALCIUM-SANDOZ [Suspect]
     Route: 065
  3. ESCITALOPRAM OXALATE [Concomitant]
     Indication: DEPRESSION
  4. ERYTHROMYCIN [Suspect]
     Route: 065
     Dates: start: 20040101
  5. ALL OTHER THERAPEUTIC PRODUCTS [Suspect]
     Route: 065
  6. DEPAKOTE [Suspect]
     Indication: BIPOLAR DISORDER
     Route: 065
  7. BUPROPION HCL [Suspect]
     Route: 065
     Dates: start: 20040101
  8. DEPAKOTE [Suspect]
     Route: 065
     Dates: end: 20040101
  9. FISH OIL [Suspect]
     Route: 065
  10. ALL OTHER THERAPEUTIC PRODUCTS [Suspect]
     Route: 065
  11. PAROXETINE HCL [Concomitant]
     Indication: DEPRESSION
  12. ERGOCALCIFEROL [Suspect]
     Route: 065
  13. TOCOPHERYL ACETATE [Suspect]
     Route: 065
  14. LITHIUM CARBONATE [Suspect]
     Route: 065
  15. PAROXETINE HCL [Concomitant]
     Indication: ANXIETY

REACTIONS (7)
  - ALLERGIC RESPIRATORY SYMPTOM [None]
  - SUICIDAL IDEATION [None]
  - NAUSEA [None]
  - DRUG HYPERSENSITIVITY [None]
  - DERMATITIS ALLERGIC [None]
  - DRUG INEFFECTIVE [None]
  - HYPERSENSITIVITY [None]
